FAERS Safety Report 16043856 (Version 2)
Quarter: 2019Q3

REPORT INFORMATION
  Report Type: Report from Study
  Country: US (occurrence: US)
  Receive Date: 20190306
  Receipt Date: 20190820
  Transmission Date: 20191004
  Serious: Yes (Other)
  Sender: FDA-Public Use
  Company Number: PHEH2019US009031

PATIENT
  Age: 76 Year
  Sex: Male

DRUGS (1)
  1. COSENTYX [Suspect]
     Active Substance: SECUKINUMAB
     Indication: PSORIASIS
     Dosage: 300 MG, Q4W (ONCE EVERY 4 WEEKS)
     Route: 058
     Dates: start: 20180628

REACTIONS (4)
  - Lower respiratory tract infection [Recovering/Resolving]
  - Sinusitis [Unknown]
  - Psoriasis [Unknown]
  - Macule [Unknown]
